FAERS Safety Report 9147770 (Version 1)
Quarter: 2013Q1

REPORT INFORMATION
  Report Type: Spontaneous
  Country: CN (occurrence: CN)
  Receive Date: 20130307
  Receipt Date: 20130307
  Transmission Date: 20140127
  Serious: Yes (Other)
  Sender: FDA-Public Use
  Company Number: CN-CELGENEUS-035-21660-13023897

PATIENT
  Sex: 0

DRUGS (2)
  1. ABRAXANE [Suspect]
     Indication: BREAST CANCER
     Route: 065
  2. CISPLATIN [Concomitant]
     Indication: BREAST CANCER
     Route: 065

REACTIONS (5)
  - Deformity [Unknown]
  - Dermatitis exfoliative [Unknown]
  - Rash generalised [Unknown]
  - Rash maculo-papular [Unknown]
  - Pruritus [Unknown]
